FAERS Safety Report 13921714 (Version 1)
Quarter: 2017Q3

REPORT INFORMATION
  Report Type: Spontaneous
  Country: US (occurrence: None)
  Receive Date: 20170830
  Receipt Date: 20170830
  Transmission Date: 20171127
  Serious: Yes (Life-Threatening, Disabling, Other)
  Sender: FDA-Public Use
  Company Number: None

PATIENT
  Age: 87 Year
  Sex: Female
  Weight: 48.08 kg

DRUGS (2)
  1. LOSARTAN 25MG [Suspect]
     Active Substance: LOSARTAN
     Indication: CARDIAC DISORDER
     Route: 048
     Dates: start: 20170723, end: 20170809
  2. CANDESARTAN 4MG [Suspect]
     Active Substance: CANDESARTAN
     Indication: CARDIAC DISORDER
     Route: 048
     Dates: start: 20170709, end: 20170716

REACTIONS (2)
  - Urticaria [None]
  - Bladder disorder [None]

NARRATIVE: CASE EVENT DATE: 20170716
